FAERS Safety Report 8082852 (Version 2)
Quarter: 2012Q4

REPORT INFORMATION
  Report Type: 
  Country: DK (occurrence: DK)
  Receive Date: 20110809
  Receipt Date: 20121128
  Transmission Date: 20130627
  Serious: Yes (Other)
  Sender: FDA-Public Use
  Company Number: DK-PFIZER INC-2011164305

PATIENT
  Age: 56 Year
  Sex: Male

DRUGS (8)
  1. LYRICA [Suspect]
     Indication: ANXIETY
     Dosage: 300 mg, 3x/day
     Dates: start: 20100728
  2. ZYPREXA [Concomitant]
     Indication: BIPOLAR DISORDER
     Dosage: UNK
     Dates: start: 20101206
  3. FONTEX [Concomitant]
     Indication: DEPRESSION
     Dosage: UNK
     Dates: start: 20100531
  4. TEGRETOL [Concomitant]
     Indication: BIPOLAR DISORDER
     Dosage: UNK
     Dates: start: 20101001
  5. RIVOTRIL [Concomitant]
     Indication: BIPOLAR DISORDER
     Dosage: UNK
     Dates: start: 20110414
  6. VENTOLINE [Concomitant]
  7. OXIS TURBUHALER ^ASTRA ZENECA^ [Concomitant]
  8. VITAMIN B [Concomitant]

REACTIONS (5)
  - Hypokalaemia [Unknown]
  - Muscle spasms [Not Recovered/Not Resolved]
  - Myoclonus [Not Recovered/Not Resolved]
  - Vitamin B12 decreased [Unknown]
  - C-reactive protein increased [Unknown]
